FAERS Safety Report 7232484-8 (Version None)
Quarter: 2011Q1

REPORT INFORMATION
  Report Type: 
  Country: None (occurrence: None)
  Receive Date: 20110119
  Receipt Date: 20101130
  Transmission Date: 20110831
  Serious: Yes (Hospitalization)
  Sender: FDA-Public Use
  Company Number: US-BAYER-201031729NA

PATIENT
  Sex: Female
  Weight: 68.027 kg

DRUGS (6)
  1. IBUPROFEN [Concomitant]
  2. NAPROXEN [Concomitant]
     Dosage: UNK UNK, PRN
  3. YASMIN [Suspect]
     Indication: CONTRACEPTION
     Dosage: UNK UNK, UNK
     Route: 048
     Dates: start: 20050301, end: 20051101
  4. CLARINEX [Concomitant]
     Indication: NASAL CONGESTION
     Dosage: UNK UNK, PRN
     Route: 048
  5. FLUVACCIN [Concomitant]
     Dosage: UNK
     Route: 030
     Dates: start: 20051118
  6. YAZ [Suspect]
     Indication: PRODUCT USED FOR UNKNOWN INDICATION
     Route: 048
     Dates: start: 20050301

REACTIONS (5)
  - PARAESTHESIA [None]
  - VISION BLURRED [None]
  - ISCHAEMIC STROKE [None]
  - HYPOAESTHESIA [None]
  - SPEECH DISORDER [None]
